FAERS Safety Report 4759864-4 (Version None)
Quarter: 2005Q3

REPORT INFORMATION
  Report Type: 
  Country: None (occurrence: None)
  Receive Date: 20050831
  Receipt Date: 20050831
  Transmission Date: 20060218
  Serious: Yes (Hospitalization)
  Sender: FDA-Public Use
  Company Number: None

PATIENT
  Age: 59 Year
  Sex: Male

DRUGS (6)
  1. PHENYTOIN [Suspect]
  2. DIVALPROEX SODIUM -DEPAKOTE(R)- [Concomitant]
  3. ATORVASTATIN -LIPITOR(R)- [Concomitant]
  4. LISINOPRIL -ZESTRIL(R)- [Concomitant]
  5. DONEPEZIL -ARICEPT(R)- [Concomitant]
  6. INSULIN [Concomitant]

REACTIONS (2)
  - ASTHENIA [None]
  - DRUG LEVEL ABOVE THERAPEUTIC [None]
